FAERS Safety Report 5153036-X (Version None)
Quarter: 2006Q4

REPORT INFORMATION
  Report Type: 
  Country: None (occurrence: None)
  Receive Date: 20061113
  Receipt Date: 20061027
  Transmission Date: 20070319
  Serious: Yes (Life-Threatening)
  Sender: FDA-Public Use
  Company Number: 2006JP003506

PATIENT
  Age: 6 Year
  Sex: Female
  Weight: 19.3 kg

DRUGS (23)
  1. FUNGUARD (MICAFUNGIN) FUNGUARD (MICAFUNGIN) INJECTION [Suspect]
     Indication: CANDIDIASIS
     Dosage: 50 MG, UID/QD, IV DRIP
     Route: 041
     Dates: start: 20060729, end: 20060807
  2. FUNGUARD (MICAFUNGIN) FUNGUARD (MICAFUNGIN) INJECTION [Suspect]
     Indication: CANDIDIASIS
     Dosage: 50 MG, UID/QD, IV DRIP
     Route: 041
     Dates: start: 20060809, end: 20060821
  3. ROCEPHIN [Suspect]
     Indication: ENTEROCOLITIS
     Dosage: SEE IMAGE
     Route: 041
     Dates: start: 20060728, end: 20060803
  4. ROCEPHIN [Suspect]
     Indication: ENTEROCOLITIS
     Dosage: SEE IMAGE
     Route: 041
     Dates: start: 20060808, end: 20060818
  5. CARBENIN (BETAMIPRON, PANIPENEM) INJECTION [Suspect]
  6. PROGRAF [Concomitant]
  7. VANCOMYCIN HYDROCHLORIDE [Concomitant]
  8. POLYMYXIN B (POLYMYXIN B SULFATE) TABLET [Concomitant]
  9. ENTERONON R (STREPTOCOCCUS FAECALIS, LACTOBACILLUS ACIDOPHILUS, STREPT [Concomitant]
  10. DIOVAN [Concomitant]
  11. GASTER POWDER [Concomitant]
  12. MEDROL [Concomitant]
  13. BAKTAR (SULFAMETHOXAZOLE, TRIMETHOPRIM) PER ORAL NOS [Concomitant]
  14. LIPIDIL (FENOFIBRATE) CAPSULE [Concomitant]
  15. CINAL (ASCORBIC ACID, CALCIUM PANTOTHENATE) PER ORAL NOS [Concomitant]
  16. ALFAROL (ALFACALCIDOL) SOLUTION [Concomitant]
  17. ADONA (CARBAZOCHROME SODIUM SULFONATE) POWDER [Concomitant]
  18. TARGOCID [Concomitant]
  19. MEROPEN (MEROPENEM) INJECTION [Concomitant]
  20. HICALIQ (GLUCOSE, POTASSIUM ACETATE, MAGNESIUM SULFATE, ZINC SULFATE, [Concomitant]
  21. PLEAMIN-P INJECTION [Concomitant]
  22. INTRALIPOS (GLYCINE MAX SEED OIL) INJECTION [Concomitant]
  23. DIFLUCAN (FLUCONAZOLE) CAPSULE [Concomitant]

REACTIONS (6)
  - ANTITHROMBIN III DECREASED [None]
  - HYPOALBUMINAEMIA [None]
  - HYPOPROTEINAEMIA [None]
  - INFECTION [None]
  - MALNUTRITION [None]
  - PANCYTOPENIA [None]
